FAERS Safety Report 11684327 (Version 10)
Quarter: 2016Q4

REPORT INFORMATION
  Report Type: Report from Study
  Country: BR (occurrence: BR)
  Receive Date: 20151029
  Receipt Date: 20161107
  Transmission Date: 20170206
  Serious: Yes (Hospitalization, Other)
  Sender: FDA-Public Use
  Company Number: PHHY2015BR140185

PATIENT
  Age: 67 Year
  Sex: Male
  Weight: 65 kg

DRUGS (5)
  1. EXJADE [Suspect]
     Active Substance: DEFERASIROX
     Dosage: 500 MG, QD (2 DF A DAY)
     Route: 048
  2. OMEPRAZOLE. [Concomitant]
     Active Substance: OMEPRAZOLE
     Indication: PRODUCT USED FOR UNKNOWN INDICATION
     Dosage: 1 DF, QD
     Route: 048
  3. EXJADE [Suspect]
     Active Substance: DEFERASIROX
     Indication: MYELODYSPLASTIC SYNDROME
     Dosage: 10 MG/KG, (1 DF OF 500 MG AND 1 DF OF 250 MG, QD)
     Route: 048
     Dates: start: 201504
  4. EXJADE [Suspect]
     Active Substance: DEFERASIROX
     Indication: ANAEMIA
     Dosage: 750 MG, UNK
     Route: 048
  5. FOLIC ACID. [Concomitant]
     Active Substance: FOLIC ACID
     Indication: ANAEMIA
     Dosage: 5 MG, QD (1 TABLET A DAY)
     Route: 048

REACTIONS (12)
  - Blood iron increased [Unknown]
  - Wrong technique in product usage process [Unknown]
  - Urinary tract inflammation [Unknown]
  - Urinary tract infection [Recovered/Resolved]
  - Neoplasm malignant [Unknown]
  - Second primary malignancy [Unknown]
  - Abasia [Unknown]
  - Cataract [Recovered/Resolved]
  - Pneumonia [Unknown]
  - Cough [Unknown]
  - Muscular weakness [Unknown]
  - Pain [Unknown]

NARRATIVE: CASE EVENT DATE: 201606
